FAERS Safety Report 6537777-5 (Version None)
Quarter: 2010Q1

REPORT INFORMATION
  Report Type: 
  Country: None (occurrence: None)
  Receive Date: 20100114
  Receipt Date: 20100104
  Transmission Date: 20100710
  Serious: Yes (Other)
  Sender: FDA-Public Use
  Company Number: JP-PFIZER INC-2010002426

PATIENT
  Age: 65 Year
  Sex: Female

DRUGS (5)
  1. ZITHROMAX [Suspect]
     Indication: PHARYNGITIS
     Dosage: 500 MG, 1X/DAY
     Route: 048
  2. ZITHROMAX [Suspect]
     Indication: COUGH
  3. LEFTOSE [Concomitant]
     Route: 048
  4. SAWATENE [Concomitant]
     Route: 048
  5. MEIACT [Concomitant]

REACTIONS (1)
  - IRITIS [None]
